FAERS Safety Report 25606163 (Version 1)
Quarter: 2025Q3

REPORT INFORMATION
  Report Type: Spontaneous
  Country: US (occurrence: None)
  Receive Date: 20250724
  Receipt Date: 20250724
  Transmission Date: 20251020
  Serious: Yes (Other)
  Sender: FDA-CTU
  Company Number: None

PATIENT
  Age: 46 Year
  Sex: Female

DRUGS (5)
  1. XEMBIFY [Suspect]
     Active Substance: HUMAN IMMUNOGLOBULIN G
     Route: 058
     Dates: start: 20250720
  2. XEMBIFY [Suspect]
     Active Substance: HUMAN IMMUNOGLOBULIN G
     Dates: start: 20250720
  3. Xembify 20% 1gm [Concomitant]
     Dates: start: 20250720
  4. Xembify 20% 2gm [Concomitant]
     Dates: start: 20250720
  5. Xembify 20% 10gm [Concomitant]
     Dates: start: 20250720

REACTIONS (9)
  - Feeling abnormal [None]
  - Infusion related reaction [None]
  - Feeling abnormal [None]
  - Sinus congestion [None]
  - Chest discomfort [None]
  - Headache [None]
  - Flushing [None]
  - Influenza like illness [None]
  - Blood glucose decreased [None]

NARRATIVE: CASE EVENT DATE: 20250720
